FAERS Safety Report 10761016 (Version 2)
Quarter: 2015Q2

REPORT INFORMATION
  Report Type: Spontaneous
  Country: US (occurrence: None)
  Receive Date: 20150202
  Receipt Date: 20150427
  Transmission Date: 20150821
  Serious: Yes (Hospitalization)
  Sender: FDA-Public Use
  Company Number: 1713747-2015-99933

PATIENT
  Age: 62 Year
  Sex: Male
  Weight: 77.6 kg

DRUGS (12)
  1. AZOPT OPTHALMIC SUSPENSION [Concomitant]
  2. ECOTRIN [Concomitant]
     Active Substance: ASPIRIN
  3. PREDNISONE. [Concomitant]
     Active Substance: PREDNISONE
  4. DELFLEX [Suspect]
     Active Substance: CALCIUM CHLORIDE\DEXTROSE MONOHYDRATE\MAGNESIUM CHLORIDE\SODIUM CHLORIDE\SODIUM LACTATE
     Indication: CHRONIC KIDNEY DISEASE
     Dosage: PERITONEAL DIALYSIS
     Dates: start: 20150108
  5. ZYLOPRIM [Concomitant]
     Active Substance: ALLOPURINOL
  6. COZAAR [Concomitant]
     Active Substance: LOSARTAN POTASSIUM
  7. LIBERTY CYCLER [Concomitant]
     Active Substance: DEVICE
  8. LIBERTY CYCLER SET [Concomitant]
  9. WELLBUTRIN XL [Concomitant]
     Active Substance: BUPROPION HYDROCHLORIDE
  10. VITAMIN D3 [Concomitant]
     Active Substance: CHOLECALCIFEROL
  11. SYNTHROID [Concomitant]
     Active Substance: LEVOTHYROXINE SODIUM
  12. PRILOSEC [Concomitant]
     Active Substance: OMEPRAZOLE MAGNESIUM

REACTIONS (8)
  - Cardiac arrest [None]
  - Respiratory arrest [None]
  - Fall [None]
  - Bradycardia [None]
  - Pulseless electrical activity [None]
  - Cardio-respiratory arrest [None]
  - Confusional state [None]
  - Asthenia [None]

NARRATIVE: CASE EVENT DATE: 20150108
